FAERS Safety Report 16208929 (Version 1)
Quarter: 2019Q2

REPORT INFORMATION
  Report Type: Spontaneous
  Country: US (occurrence: US)
  Receive Date: 20190417
  Receipt Date: 20190417
  Transmission Date: 20190711
  Serious: No
  Sender: FDA-Public Use
  Company Number: US-SA-2019SA102837

PATIENT
  Age: 37 Year
  Sex: Female

DRUGS (1)
  1. CEREZYME [Suspect]
     Active Substance: IMIGLUCERASE
     Indication: GAUCHER^S DISEASE
     Dosage: 4000 MG, QOW
     Route: 065
     Dates: start: 20150425

REACTIONS (1)
  - Exposure during pregnancy [Not Recovered/Not Resolved]
